FAERS Safety Report 9931488 (Version 2)
Quarter: 2014Q1

REPORT INFORMATION
  Report Type: Spontaneous
  Country: US (occurrence: US)
  Receive Date: 20140228
  Receipt Date: 20140306
  Transmission Date: 20141002
  Serious: Yes (Other)
  Sender: FDA-Public Use
  Company Number: US-RB-063267-14

PATIENT
  Age: 88 Year
  Sex: Female

DRUGS (1)
  1. DELSYM ADULT ORANGE [Suspect]
     Indication: PRODUCT USED FOR UNKNOWN INDICATION
     Dosage: DOSAGE OF 10ML. FIRST TOOK THE PRODUCT ??/FEB/2013. LAST TOOK THE DRUG IN MORNING OF 19-FEB-2014.
     Route: 048

REACTIONS (2)
  - Loss of consciousness [Recovered/Resolved]
  - Diarrhoea [Recovered/Resolved]
